FAERS Safety Report 21033582 (Version 3)
Quarter: 2022Q3

REPORT INFORMATION
  Report Type: Spontaneous
  Country: JP (occurrence: JP)
  Receive Date: 20220701
  Receipt Date: 20220708
  Transmission Date: 20221027
  Serious: Yes (Other)
  Sender: FDA-Public Use
  Company Number: JP-PFIZER INC-202200886227

PATIENT
  Age: 69 Year
  Sex: Male
  Weight: 57.8 kg

DRUGS (4)
  1. PACLITAXEL [Suspect]
     Active Substance: PACLITAXEL
     Indication: Gastric cancer stage III
     Dosage: 80 MG/M2 (DAYS 1,8,15)/4-WEEK COURSE
     Route: 042
  2. PACLITAXEL [Suspect]
     Active Substance: PACLITAXEL
     Dosage: 130 MG PER DAY ON DAYS 1, 8 AND 15/4-WEEK COURSE
     Route: 042
  3. RAMUCIRUMAB [Suspect]
     Active Substance: RAMUCIRUMAB
     Indication: Gastric cancer stage III
     Dosage: 8 MG/KG (DAYS 1 AND 15)/4 WEEK COURSE
     Route: 042
  4. RAMUCIRUMAB [Suspect]
     Active Substance: RAMUCIRUMAB
     Dosage: 450MG PER DAY ON DAYS 1 AND 15/4-WEEK COURSE
     Route: 042

REACTIONS (1)
  - Fatigue [Recovered/Resolved]
